FAERS Safety Report 14557753 (Version 3)
Quarter: 2018Q1

REPORT INFORMATION
  Report Type: Spontaneous
  Country: GR (occurrence: GR)
  Receive Date: 20180221
  Receipt Date: 20180315
  Transmission Date: 20180509
  Serious: Yes (Hospitalization)
  Sender: FDA-Public Use
  Company Number: GR-PFIZER INC-2018073354

PATIENT
  Age: 71 Year
  Sex: Female

DRUGS (2)
  1. SOMATULINE /01330101/ [Concomitant]
     Active Substance: LANREOTIDE ACETATE
     Dosage: 120 MG/15
  2. SUTENT [Suspect]
     Active Substance: SUNITINIB MALATE
     Indication: PANCREATIC CARCINOMA
     Dosage: UNK
     Dates: start: 201712, end: 201802

REACTIONS (1)
  - Hypocalcaemia [Recovered/Resolved]

NARRATIVE: CASE EVENT DATE: 201802
